FAERS Safety Report 23094932 (Version 1)
Quarter: 2023Q4

REPORT INFORMATION
  Report Type: Spontaneous
  Country: US (occurrence: None)
  Receive Date: 20231019
  Receipt Date: 20231019
  Transmission Date: 20240110
  Serious: No
  Sender: FDA-Public Use
  Company Number: None

PATIENT
  Age: 54 Year
  Sex: Male

DRUGS (1)
  1. ADEMPAS [Suspect]
     Active Substance: RIOCIGUAT
     Indication: Pulmonary hypertension
     Dosage: FREQUENCY : 3 TIMES A DAY;?
     Route: 048
     Dates: start: 20210702

REACTIONS (5)
  - Amputation stump pain [None]
  - Peripheral swelling [None]
  - Drug ineffective [None]
  - Skin ulcer [None]
  - Product formulation issue [None]

NARRATIVE: CASE EVENT DATE: 20231002
